FAERS Safety Report 9103498 (Version 1)
Quarter: 2013Q1

REPORT INFORMATION
  Report Type: Spontaneous
  Country: AR (occurrence: AR)
  Receive Date: 20130218
  Receipt Date: 20130218
  Transmission Date: 20140127
  Serious: Yes (Hospitalization, Other)
  Sender: FDA-Public Use
  Company Number: PHHY2012AR127463

PATIENT
  Sex: Female

DRUGS (1)
  1. DIOVAN [Suspect]
     Indication: CONGESTIVE CARDIOMYOPATHY
     Dosage: 1 DF, DAILY (VALS 160 MG)
     Route: 048
     Dates: start: 2007, end: 201210

REACTIONS (2)
  - Arrhythmia [Unknown]
  - Cough [Recovering/Resolving]
